FAERS Safety Report 19084929 (Version 1)
Quarter: 2021Q2

REPORT INFORMATION
  Report Type: Spontaneous
  Country: CN (occurrence: CN)
  Receive Date: 20210401
  Receipt Date: 20210401
  Transmission Date: 20210717
  Serious: Yes (Other)
  Sender: FDA-Public Use
  Company Number: CN-PFIZER INC-2021320584

PATIENT
  Age: 50 Year
  Sex: Female
  Weight: 55 kg

DRUGS (4)
  1. SODIUM CHLORIDE. [Concomitant]
     Active Substance: SODIUM CHLORIDE
     Indication: VEHICLE SOLUTION USE
     Dosage: 1.000 ML, 1X/DAY
     Route: 058
     Dates: start: 20210309, end: 20210319
  2. CYTOSAR [Suspect]
     Active Substance: CYTARABINE
     Indication: ACUTE MYELOID LEUKAEMIA
     Dosage: 0.016 G, 1X/DAY
     Route: 058
     Dates: start: 20210309, end: 20210319
  3. AZACITIDINE. [Suspect]
     Active Substance: AZACITIDINE
     Indication: ACUTE MYELOID LEUKAEMIA
     Dosage: 100.000 MG, 1X/DAY
     Route: 058
     Dates: start: 20210315, end: 20210322
  4. STERILIZED WATER FOR INJECTIONS [Concomitant]
     Indication: VEHICLE SOLUTION USE
     Dosage: 4.000 ML, 1X/DAY
     Route: 058
     Dates: start: 20210315, end: 20210322

REACTIONS (3)
  - Blood test abnormal [Unknown]
  - Condition aggravated [Unknown]
  - Platelet count decreased [Unknown]

NARRATIVE: CASE EVENT DATE: 20210311
